FAERS Safety Report 18387334 (Version 1)
Quarter: 2020Q4

REPORT INFORMATION
  Report Type: Spontaneous
  Country: US (occurrence: US)
  Receive Date: 20201014
  Receipt Date: 20201014
  Transmission Date: 20210114
  Serious: Yes (Hospitalization)
  Sender: FDA-Public Use
  Company Number: None

PATIENT
  Age: 40 Year
  Sex: Female

DRUGS (1)
  1. HUMIRA [Suspect]
     Active Substance: ADALIMUMAB
     Indication: SPINAL OSTEOARTHRITIS
     Dosage: ?          OTHER FREQUENCY:EVERY2WEEKS ;?
     Route: 058
     Dates: start: 201801

REACTIONS (3)
  - Condition aggravated [None]
  - Appendicitis perforated [None]
  - Musculoskeletal stiffness [None]

NARRATIVE: CASE EVENT DATE: 20200909
